FAERS Safety Report 10827893 (Version 1)
Quarter: 2015Q1

REPORT INFORMATION
  Report Type: Spontaneous
  Country: TH (occurrence: TH)
  Receive Date: 20150219
  Receipt Date: 20150219
  Transmission Date: 20150721
  Serious: Yes (Death)
  Sender: FDA-Public Use
  Company Number: TH-CIPLA LTD.-2015TH01122

PATIENT

DRUGS (4)
  1. PYTHIUM INSIDIOSUM ANTIGEN VACCINE [Suspect]
     Active Substance: INVESTIGATIONAL PRODUCT
     Indication: PYTHIUM INSIDIOSUM INFECTION
     Dosage: 1 ML
     Route: 058
  2. ITRACONAZOLE. [Suspect]
     Active Substance: ITRACONAZOLE
     Indication: PYTHIUM INSIDIOSUM INFECTION
     Route: 048
  3. DEFEROXAMINE [Suspect]
     Active Substance: DEFEROXAMINE\DEFEROXAMINE MESYLATE
     Indication: PYTHIUM INSIDIOSUM INFECTION
     Dosage: 1000 MG, QD
     Route: 042
  4. TERBINAFINE HYDROCHLORIDE. [Suspect]
     Active Substance: TERBINAFINE HYDROCHLORIDE
     Indication: PYTHIUM INSIDIOSUM INFECTION
     Route: 048

REACTIONS (1)
  - Death [Fatal]
